FAERS Safety Report 20084559 (Version 1)
Quarter: 2021Q4

REPORT INFORMATION
  Report Type: Spontaneous
  Country: US (occurrence: US)
  Receive Date: 20211118
  Receipt Date: 20211118
  Transmission Date: 20220304
  Serious: No
  Sender: FDA-Public Use
  Company Number: US-BIOGEN-2021BI01066155

PATIENT
  Sex: Female

DRUGS (2)
  1. VUMERITY [Suspect]
     Active Substance: DIROXIMEL FUMARATE
     Indication: Multiple sclerosis
     Route: 048
  2. VUMERITY [Suspect]
     Active Substance: DIROXIMEL FUMARATE
     Route: 048
     Dates: start: 20211111

REACTIONS (5)
  - Product dose omission issue [Not Recovered/Not Resolved]
  - Memory impairment [Unknown]
  - Paraesthesia [Not Recovered/Not Resolved]
  - Anxiety [Unknown]
  - Diarrhoea [Unknown]
